FAERS Safety Report 15114760 (Version 6)
Quarter: 2018Q4

REPORT INFORMATION
  Report Type: Spontaneous
  Country: JP (occurrence: JP)
  Receive Date: 20180706
  Receipt Date: 20181001
  Transmission Date: 20190204
  Serious: Yes (Life-Threatening, Disabling, Other)
  Sender: FDA-Public Use
  Company Number: JP-OTSUKA-2018_018407AA

PATIENT
  Age: 66 Year
  Sex: Male

DRUGS (15)
  1. REXULTI [Suspect]
     Active Substance: BREXPIPRAZOLE
     Indication: SCHIZOPHRENIA
     Dosage: 2 MG, DAILY DOSE
     Route: 048
     Dates: start: 20180621, end: 20180622
  2. VIMPAT [Concomitant]
     Active Substance: LACOSAMIDE
     Indication: SEIZURE
     Dosage: UNK
     Route: 065
  3. SODIUM VALPROATE [Suspect]
     Active Substance: VALPROATE SODIUM
     Dosage: 400 MG, DAILY DOSE
     Route: 048
     Dates: start: 20180621, end: 20180622
  4. SODIUM VALPROATE [Suspect]
     Active Substance: VALPROATE SODIUM
     Indication: PRODUCT USED FOR UNKNOWN INDICATION
     Dosage: 800 MG, DAILY DOSE
     Route: 048
     Dates: start: 20180428, end: 20180620
  5. QUETIAPINE. [Suspect]
     Active Substance: QUETIAPINE
     Indication: PRODUCT USED FOR UNKNOWN INDICATION
     Dosage: 100 MG, DAILY DOSE
     Route: 048
     Dates: end: 20180620
  6. PREDONINE [Concomitant]
     Active Substance: PREDNISOLONE
     Indication: DRUG ERUPTION
     Dosage: 5 MG, DAILY DOSE
     Route: 048
     Dates: start: 20180618, end: 20180622
  7. TATHION [Concomitant]
     Active Substance: GLUTATHIONE
     Indication: PRODUCT USED FOR UNKNOWN INDICATION
     Dosage: 3 DF, DAILY DOSE
     Route: 048
     Dates: start: 20180620, end: 20180622
  8. EPL [Concomitant]
     Active Substance: LECITHIN
     Indication: PRODUCT USED FOR UNKNOWN INDICATION
     Dosage: 3 DF, DAILY DOSE
     Route: 048
     Dates: start: 20180620, end: 20180622
  9. FEXOFENADINE HYDROCHLORIDE. [Concomitant]
     Active Substance: FEXOFENADINE HYDROCHLORIDE
     Indication: PRODUCT USED FOR UNKNOWN INDICATION
     Dosage: 2 DF, DAILY DOSE
     Route: 048
     Dates: start: 20180620, end: 20180622
  10. REXULTI [Suspect]
     Active Substance: BREXPIPRAZOLE
     Indication: SCHIZOPHRENIA
     Dosage: 1 MG, DAILY DOSE
     Route: 048
     Dates: start: 20180614, end: 20180618
  11. REXULTI [Suspect]
     Active Substance: BREXPIPRAZOLE
     Dosage: 2 MG, UNK
     Route: 065
  12. LONASEN [Suspect]
     Active Substance: BLONANSERIN
     Indication: PRODUCT USED FOR UNKNOWN INDICATION
     Dosage: 24 MG, DAILY DOSE
     Route: 048
     Dates: start: 20180531, end: 20180620
  13. ARIPIPRAZOLE. [Suspect]
     Active Substance: ARIPIPRAZOLE
     Indication: PRODUCT USED FOR UNKNOWN INDICATION
     Dosage: 30 MG, DAILY DOSE
     Route: 048
     Dates: start: 20180427, end: 20180530
  14. HALOPERIDOL. [Concomitant]
     Active Substance: HALOPERIDOL
     Indication: PRODUCT USED FOR UNKNOWN INDICATION
     Dosage: 5 MG, DAILY DOSE
     Route: 041
     Dates: start: 20180625
  15. FLUNITRAZEPAM [Suspect]
     Active Substance: FLUNITRAZEPAM
     Indication: PRODUCT USED FOR UNKNOWN INDICATION
     Dosage: 1 MG, DAILY DOSE
     Route: 048
     Dates: end: 20180620

REACTIONS (7)
  - Pneumonia [Unknown]
  - Dyskinesia [Unknown]
  - Hepatic function abnormal [Unknown]
  - Drug eruption [Recovered/Resolved]
  - Hyponatraemia [Recovered/Resolved]
  - Muscle rigidity [Unknown]
  - Septic shock [Unknown]

NARRATIVE: CASE EVENT DATE: 20180618
